FAERS Safety Report 4884906-5 (Version None)
Quarter: 2006Q1

REPORT INFORMATION
  Report Type: 
  Country: None (occurrence: None)
  Receive Date: 20060117
  Receipt Date: 20060111
  Transmission Date: 20060701
  Serious: No
  Sender: FDA-Public Use
  Company Number: TAP2006Q00048

PATIENT
  Age: 81 Year
  Sex: Male
  Weight: 77 kg

DRUGS (6)
  1. PREVACID [Suspect]
     Indication: BLISTER
     Dosage: 30 MG, 1 IN 1 D, PER ORAL
     Route: 048
     Dates: start: 20051227, end: 20051230
  2. PREVACID [Suspect]
     Indication: GASTRIC ULCER
     Dosage: 30 MG, 1 IN 1 D, PER ORAL
     Route: 048
     Dates: start: 20051227, end: 20051230
  3. PREVACID [Suspect]
     Indication: OESOPHAGEAL DISORDER
     Dosage: 30 MG, 1 IN 1 D, PER ORAL
     Route: 048
     Dates: start: 20051227, end: 20051230
  4. HYTRIN (TERAZOSIN HYDROCHLORIDE) (CAPSULES) [Concomitant]
  5. CHLORTALIDONE (CHLORTALIDONE) (CAPSULES) [Concomitant]
  6. RANITIDINE (RANITIDINE) (TABLETS) [Concomitant]

REACTIONS (3)
  - DIZZINESS [None]
  - NERVOUSNESS [None]
  - VISION BLURRED [None]
